FAERS Safety Report 6076307-1 (Version None)
Quarter: 2009Q1

REPORT INFORMATION
  Report Type: 
  Country: None (occurrence: None)
  Receive Date: 20090209
  Receipt Date: 20090130
  Transmission Date: 20090719
  Serious: Yes (Hospitalization)
  Sender: FDA-Public Use
  Company Number: KV200900146

PATIENT
  Age: 43 Year
  Sex: Female
  Weight: 70.3 kg

DRUGS (5)
  1. MORPHINE SULFATE [Suspect]
     Indication: BACK PAIN
     Dosage: 60 MG, MORE THAN 1 PER DAY, ORAL
     Route: 048
     Dates: start: 20080201, end: 20080201
  2. MORPHINE SULFATE [Suspect]
     Indication: NECK PAIN
     Dosage: 60 MG, MORE THAN 1 PER DAY, ORAL
     Route: 048
     Dates: start: 20080201, end: 20080201
  3. ATENOLOL [Concomitant]
  4. NEXIUM [Concomitant]
  5. EFFEXOR XR [Concomitant]

REACTIONS (7)
  - ACTIVITIES OF DAILY LIVING IMPAIRED [None]
  - CEREBROVASCULAR ACCIDENT [None]
  - HYPERSOMNIA [None]
  - MYOCARDIAL INFARCTION [None]
  - PRODUCT QUALITY ISSUE [None]
  - SLEEP ATTACKS [None]
  - SOMNOLENCE [None]
